FAERS Safety Report 6175090-9 (Version None)
Quarter: 2009Q2

REPORT INFORMATION
  Report Type: 
  Country: None (occurrence: None)
  Receive Date: 20090430
  Receipt Date: 20090223
  Transmission Date: 20091009
  Serious: No
  Sender: FDA-Public Use
  Company Number: US-ASTRAZENECA-2009UW05114

PATIENT
  Age: 72 Year
  Sex: Female
  Weight: 77.1 kg

DRUGS (5)
  1. NEXIUM [Suspect]
     Indication: GASTROOESOPHAGEAL REFLUX DISEASE
     Route: 048
     Dates: start: 20071201, end: 20081225
  2. NEXIUM [Suspect]
     Route: 048
     Dates: start: 20050101, end: 20071201
  3. IMURAN [Concomitant]
  4. PRAVACHOL [Concomitant]
     Route: 048
  5. STOOL SOFTENER [Concomitant]

REACTIONS (19)
  - ABDOMINAL DISTENSION [None]
  - ABDOMINAL PAIN UPPER [None]
  - CONSTIPATION [None]
  - DIZZINESS [None]
  - DYSGEUSIA [None]
  - EYE DISCHARGE [None]
  - EYE IRRITATION [None]
  - EYE PRURITUS [None]
  - FATIGUE [None]
  - GASTRIC POLYPS [None]
  - HOT FLUSH [None]
  - MYALGIA [None]
  - OCULAR HYPERAEMIA [None]
  - OEDEMA PERIPHERAL [None]
  - PRURITUS [None]
  - THYROID MASS [None]
  - TINNITUS [None]
  - ULCER [None]
  - VISION BLURRED [None]
